FAERS Safety Report 7639091 (Version 2)
Quarter: 2013Q1

REPORT INFORMATION
  Report Type: Spontaneous
  Country: US (occurrence: US)
  Receive Date: 20101025
  Receipt Date: 20130111
  Transmission Date: 20140127
  Serious: No
  Sender: FDA-Public Use
  Company Number: US-B.I. PHARMACEUTICALS,INC./RIDGEFIELD-2010-BP-10365BP

PATIENT
  Age: 55 Year
  Sex: Female

DRUGS (7)
  1. MIRAPEX [Suspect]
     Indication: RESTLESS LEGS SYNDROME
     Dosage: 0.375 MG
     Route: 048
     Dates: start: 20100801, end: 2011
  2. MIRAPEX [Suspect]
     Indication: NEUROPATHY PERIPHERAL
  3. ZOLOFT [Concomitant]
     Indication: DEPRESSION
  4. TRAMADOL [Concomitant]
     Indication: LIMB DISCOMFORT
  5. SYNTHROID [Concomitant]
     Indication: HYPOTHYROIDISM
  6. B12 [Concomitant]
  7. PRILOSEC OTC [Concomitant]
     Indication: ULCER

REACTIONS (6)
  - Headache [Not Recovered/Not Resolved]
  - Vulvovaginal pruritus [Unknown]
  - Vulvovaginal burning sensation [Unknown]
  - Hypersensitivity [Recovered/Resolved]
  - Vulvovaginal pruritus [Recovered/Resolved]
  - Vulvovaginal burning sensation [Recovered/Resolved]
